FAERS Safety Report 9511277 (Version 1)
Quarter: 2013Q1

REPORT INFORMATION
  Report Type: Spontaneous
  Country: US (occurrence: None)
  Receive Date: 20130305
  Receipt Date: 20130305
  Transmission Date: 20140127
  Serious: Yes (Hospitalization, Other)
  Sender: FDA-Public Use
  Company Number: 163-21880-12103223

PATIENT
  Age: 56 Year
  Sex: Male

DRUGS (6)
  1. REVLIMID [Suspect]
     Dosage: 25 MG, 14 IN 21 D, PO
     Dates: start: 20081222, end: 2012
  2. SYNTHROID(LEVOTHYROXINE SODIUM)(UNKNOWN) [Concomitant]
  3. BABY ASA(ACETYLSALICYLIC ACID)(UNKNOWN) [Concomitant]
  4. ACYCLOVIR(ACICLOVIR)(UNKNOWN) [Concomitant]
  5. VELCADE(BORTEZOMIB)(UNKNOWN) [Concomitant]
  6. ALLOPURINOL(ALLOPURINOL)(UNKNOWN) [Concomitant]

REACTIONS (1)
  - Pneumonia [None]
